FAERS Safety Report 24156091 (Version 2)
Quarter: 2024Q3

REPORT INFORMATION
  Report Type: Spontaneous
  Country: BR (occurrence: BR)
  Receive Date: 20240731
  Receipt Date: 20240806
  Transmission Date: 20241016
  Serious: Yes (Other)
  Sender: AMGEN
  Company Number: BR-AMGEN-BRASP2024148658

PATIENT
  Age: 6 Year
  Sex: Female

DRUGS (1)
  1. BLINCYTO [Suspect]
     Active Substance: BLINATUMOMAB
     Indication: Product used for unknown indication
     Dosage: UNK, BAG WAS PREPARED FOR 96H, WITH AN INFUSION RATE OF 2.6 ML/H
     Route: 065

REACTIONS (6)
  - Lip pruritus [Unknown]
  - Papule [Unknown]
  - Lip oedema [Unknown]
  - Rash [Unknown]
  - Pyrexia [Unknown]
  - Ill-defined disorder [Unknown]
